FAERS Safety Report 20089227 (Version 4)
Quarter: 2022Q4

REPORT INFORMATION
  Report Type: Report from Study
  Country: AR (occurrence: None)
  Receive Date: 20211119
  Receipt Date: 20221114
  Transmission Date: 20230112
  Serious: Yes (Hospitalization)
  Sender: FDA-Public Use
  Company Number: AR-ROCHE-2928431

PATIENT
  Age: 71 Year
  Sex: Male
  Weight: 75 kg

DRUGS (13)
  1. COBIMETINIB [Suspect]
     Active Substance: COBIMETINIB
     Indication: Non-small cell lung cancer metastatic
     Dosage: ON 02/OCT/2021, HE RECEIVED MOST RECENT DOSE OF COBIMETNIB (60 MG) PRIOR TO ONSET OF SERIOUS ADVERSE
     Route: 048
     Dates: start: 20210920
  2. VEMURAFENIB [Suspect]
     Active Substance: VEMURAFENIB
     Indication: Non-small cell lung cancer metastatic
     Dosage: ON 02/OCT/2021, HE RECEIVED MOST RECENT DOSE OF VEMURAFENIB (960 MG) PRIOR TO ONSET OF SERIOUS ADVER
     Route: 048
     Dates: start: 20210920
  3. ATEZOLIZUMAB [Suspect]
     Active Substance: ATEZOLIZUMAB
     Indication: Non-small cell lung cancer metastatic
     Dosage: ON 20/SEP/2021, HE RECEIVED MOST RECENT DOSE OF ATEZOLIZUMAB (60 MG) PRIOR TO ONSET OF ADVERSE EVENT
     Route: 041
  4. ENALAPRIL [Concomitant]
     Active Substance: ENALAPRIL
     Indication: Hypertension
     Route: 048
     Dates: start: 2011
  5. SERTRALINE [Concomitant]
     Active Substance: SERTRALINE HYDROCHLORIDE
     Indication: Depression
     Route: 048
     Dates: start: 2011
  6. ALPRAZOLAM [Concomitant]
     Active Substance: ALPRAZOLAM
     Indication: Depression
     Route: 048
     Dates: start: 20210708
  7. TICAGRELOR [Concomitant]
     Active Substance: TICAGRELOR
     Indication: Coronary artery disease
     Route: 048
     Dates: start: 20210708
  8. ROSUVASTATIN [Concomitant]
     Active Substance: ROSUVASTATIN
     Indication: Hyperlipidaemia
     Route: 048
     Dates: start: 20210708
  9. OMEPRAZOLE [Concomitant]
     Active Substance: OMEPRAZOLE
     Indication: Gastrointestinal disorder prophylaxis
     Route: 048
     Dates: start: 20210708
  10. VANCOMYCIN [Concomitant]
     Active Substance: VANCOMYCIN
     Indication: Diarrhoea
     Route: 048
     Dates: start: 20211003, end: 20211006
  11. HUMAN RED BLOOD CELL [Concomitant]
     Active Substance: HUMAN RED BLOOD CELL
     Indication: Anaemia
     Dosage: MEDICATION DOSE- 1 U
     Route: 042
     Dates: start: 20211006, end: 20211007
  12. HUMAN RED BLOOD CELL [Concomitant]
     Active Substance: HUMAN RED BLOOD CELL
     Dosage: MEDICATION DOSE- 1 U
     Route: 042
     Dates: start: 20211031, end: 20211031
  13. HUMAN RED BLOOD CELL [Concomitant]
     Active Substance: HUMAN RED BLOOD CELL
     Dosage: MEDICATION DOSE- 1 U
     Route: 042
     Dates: start: 20211101, end: 20211101

REACTIONS (3)
  - Blood creatinine increased [Recovered/Resolved]
  - Diarrhoea [Recovered/Resolved]
  - Urinary tract infection [Recovered/Resolved]

NARRATIVE: CASE EVENT DATE: 20210927
